FAERS Safety Report 6417151-2 (Version None)
Quarter: 2009Q4

REPORT INFORMATION
  Report Type: 
  Country: None (occurrence: None)
  Receive Date: 20091028
  Receipt Date: 20091016
  Transmission Date: 20100525
  Serious: Yes (Other)
  Sender: FDA-Public Use
  Company Number: ES-JNJFOC-20091005110

PATIENT
  Age: 46 Year
  Sex: Male

DRUGS (1)
  1. PREZISTA [Suspect]
     Indication: HIV INFECTION
     Route: 048

REACTIONS (2)
  - AGGRESSION [None]
  - NERVOUSNESS [None]
